FAERS Safety Report 5706013-1 (Version None)
Quarter: 2008Q2

REPORT INFORMATION
  Report Type: 
  Country: None (occurrence: None)
  Receive Date: 20080415
  Receipt Date: 20080404
  Transmission Date: 20081010
  Serious: Yes (Other)
  Sender: FDA-Public Use
  Company Number: PHHY2008AU01797

PATIENT
  Sex: Female

DRUGS (1)
  1. FAMVIR [Suspect]
     Indication: ORAL HERPES
     Dosage: 500 MG X 3 STAT
     Route: 048

REACTIONS (4)
  - FALL [None]
  - MULTIPLE FRACTURES [None]
  - MUSCULAR WEAKNESS [None]
  - ORAL HERPES [None]
